FAERS Safety Report 6588894-5 (Version None)
Quarter: 2010Q1

REPORT INFORMATION
  Report Type: 
  Country: None (occurrence: None)
  Receive Date: 20100218
  Receipt Date: 20100209
  Transmission Date: 20100710
  Serious: Yes (Other)
  Sender: FDA-Public Use
  Company Number: ID-ABBOTT-10P-079-0625711-00

PATIENT
  Age: 4 Year
  Sex: Female
  Weight: 15 kg

DRUGS (2)
  1. CLARITHROMYCIN SUSPENSION [Suspect]
     Indication: PHARYNGITIS
     Route: 048
  2. PRORIS [Suspect]
     Indication: PYREXIA
     Route: 048

REACTIONS (3)
  - EYELID OEDEMA [None]
  - LIP SWELLING [None]
  - URTICARIA [None]
